FAERS Safety Report 4724393-0 (Version None)
Quarter: 2005Q3

REPORT INFORMATION
  Report Type: 
  Country: None (occurrence: None)
  Receive Date: 20050720
  Receipt Date: 20050720
  Transmission Date: 20060218
  Serious: Yes (Hospitalization)
  Sender: FDA-Public Use
  Company Number: None

PATIENT
  Age: 43 Year
  Sex: Male
  Weight: 98.8842 kg

DRUGS (2)
  1. IBUPROFEN [Suspect]
     Indication: INFLAMMATION
     Dosage: TID, ORAL
     Route: 048
  2. IBUPROFEN [Suspect]
     Indication: PAIN
     Dosage: TID, ORAL
     Route: 048

REACTIONS (1)
  - ANGIONEUROTIC OEDEMA [None]
